FAERS Safety Report 23389018 (Version 2)
Quarter: 2024Q1

REPORT INFORMATION
  Report Type: Spontaneous
  Country: NL (occurrence: NL)
  Receive Date: 20240110
  Receipt Date: 20240318
  Transmission Date: 20240410
  Serious: Yes (Life-Threatening, Other)
  Sender: FDA-Public Use
  Company Number: None

PATIENT
  Age: 6 Year
  Sex: Male
  Weight: 50 kg

DRUGS (6)
  1. NGENLA [Interacting]
     Active Substance: SOMATROGON-GHLA
     Indication: Congenital growth hormone deficiency
     Dosage: 24 MG, WEEKLY
     Dates: start: 20231123, end: 20231219
  2. HYDROCORTISONE [Interacting]
     Active Substance: HYDROCORTISONE
     Indication: Hypopituitarism
     Dosage: 10 MG, 1X/DAY (5 MG, 3 MG, AND 2 MG EVERY DAY)
     Dates: start: 20191111
  3. HYDROCORTISONE [Interacting]
     Active Substance: HYDROCORTISONE
     Indication: Hypopituitarism
     Dosage: 100 MG, DAILY (5 MG, 3 MG, AND 2 MG EVERY DAY, AS REPORTED)
     Dates: start: 20191111
  4. LEVOTHYROXINE SODIUM [Concomitant]
     Active Substance: LEVOTHYROXINE SODIUM
     Dosage: 1 DD 112 UG
  5. HYDROCORTISONE [Concomitant]
     Active Substance: HYDROCORTISONE
     Dosage: UNK
  6. DEXAMETHASONE [Concomitant]
     Active Substance: DEXAMETHASONE
     Dosage: INJECTION FLUID, 1 MG/ML (MILLIGRAM PER MILLILITER)

REACTIONS (5)
  - Sepsis [Recovered/Resolved]
  - Guillain-Barre syndrome [Recovering/Resolving]
  - Status epilepticus [Recovered/Resolved]
  - Influenza [Recovered/Resolved]
  - Drug interaction [Unknown]
